FAERS Safety Report 6616588-6 (Version None)
Quarter: 2010Q1

REPORT INFORMATION
  Report Type: 
  Country: None (occurrence: None)
  Receive Date: 20100305
  Receipt Date: 20100226
  Transmission Date: 20100710
  Serious: Yes (Hospitalization)
  Sender: FDA-Public Use
  Company Number: PHHY2010JP06099

PATIENT
  Sex: Female

DRUGS (10)
  1. DIOVAN [Suspect]
     Dosage: 1 DF (80 MG), QD
     Route: 048
     Dates: start: 20071211
  2. ERISPAN [Concomitant]
     Dosage: 3 DF
     Route: 048
     Dates: start: 20071211, end: 20090327
  3. LASIX [Concomitant]
     Dosage: 20 MG
     Route: 048
     Dates: start: 20081002, end: 20090704
  4. PARIET [Concomitant]
     Dosage: 10 MG
     Route: 048
     Dates: start: 20071211, end: 20090516
  5. MAGNESIUM OXIDE [Concomitant]
     Dosage: 1G
     Route: 048
     Dates: start: 20071211, end: 20090311
  6. PREDONINE [Concomitant]
     Dosage: 6 MG
     Route: 048
     Dates: start: 20071211
  7. PREDONINE [Concomitant]
     Dosage: 5 MG
     Route: 048
  8. PREDONINE [Concomitant]
     Dosage: 4 MG
     Route: 048
  9. LANSOPRAZOLE [Concomitant]
     Dosage: 10 MG
     Route: 048
     Dates: start: 20090511
  10. RADICUT [Concomitant]
     Dosage: 40 MG
     Dates: start: 20090304, end: 20090324

REACTIONS (2)
  - BEDRIDDEN [None]
  - CEREBRAL INFARCTION [None]
